FAERS Safety Report 5536519-X (Version None)
Quarter: 2007Q4

REPORT INFORMATION
  Report Type: 
  Country: None (occurrence: None)
  Receive Date: 20071206
  Receipt Date: 20071127
  Transmission Date: 20080405
  Serious: Yes (Other)
  Sender: FDA-Public Use
  Company Number: FR-GENENTECH-249668

PATIENT
  Sex: Female
  Weight: 69 kg

DRUGS (5)
  1. RITUXIMAB [Suspect]
     Indication: B-CELL LYMPHOMA
     Dosage: 640 MG, UNK
     Route: 042
     Dates: start: 20060808
  2. DOXORUBICIN HCL [Suspect]
     Indication: B-CELL LYMPHOMA
     Dosage: 85 MG, UNK
     Route: 042
     Dates: start: 20060808
  3. CYCLOPHOSPHAMIDE [Suspect]
     Indication: B-CELL LYMPHOMA
     Dosage: 1300 MG, UNK
     Route: 042
     Dates: start: 20060808
  4. VINCRISTINE [Suspect]
     Indication: B-CELL LYMPHOMA
     Dosage: 2 MG, UNK
     Route: 042
     Dates: start: 20060808
  5. SOLUPRED [Suspect]
     Indication: B-CELL LYMPHOMA
     Dosage: 70 MG, UNK
     Route: 048
     Dates: start: 20060808

REACTIONS (1)
  - BASAL CELL CARCINOMA [None]
